FAERS Safety Report 5064128-8 (Version None)
Quarter: 2006Q3

REPORT INFORMATION
  Report Type: 
  Country: None (occurrence: None)
  Receive Date: 20060728
  Receipt Date: 20060209
  Transmission Date: 20061208
  Serious: No
  Sender: FDA-Public Use
  Company Number: US-GLAXOSMITHKLINE-A0593092A

PATIENT
  Age: 68 Year
  Sex: Male
  Weight: 77.3 kg

DRUGS (4)
  1. ZANTAC [Suspect]
     Indication: DRUG USE FOR UNKNOWN INDICATION
     Route: 042
     Dates: start: 20060302, end: 20060302
  2. WELLBUTRIN [Concomitant]
  3. PENICILLIN [Concomitant]
  4. DYE [Concomitant]

REACTIONS (1)
  - INJECTION SITE PRURITUS [None]
